FAERS Safety Report 18044977 (Version 1)
Quarter: 2020Q3

REPORT INFORMATION
  Report Type: Spontaneous
  Country: US (occurrence: US)
  Receive Date: 20200720
  Receipt Date: 20200720
  Transmission Date: 20201103
  Serious: Yes (Other)
  Sender: FDA-Public Use
  Company Number: US-BAYER-2020-139425

PATIENT
  Age: 20 Year
  Sex: Female

DRUGS (1)
  1. KYLEENA [Suspect]
     Active Substance: LEVONORGESTREL
     Indication: CONTRACEPTION
     Dosage: 17.5 ?G PER DAY CONTINUOUSLY
     Route: 015
     Dates: start: 20200608

REACTIONS (3)
  - Ovarian cyst ruptured [None]
  - Genital haemorrhage [Not Recovered/Not Resolved]
  - Haemorrhagic ovarian cyst [None]

NARRATIVE: CASE EVENT DATE: 202006
